FAERS Safety Report 9293268 (Version 1)
Quarter: 2013Q2

REPORT INFORMATION
  Report Type: Spontaneous
  Country: US (occurrence: US)
  Receive Date: 20130516
  Receipt Date: 20130516
  Transmission Date: 20140414
  Serious: No
  Sender: FDA-Public Use
  Company Number: US-PFIZER INC-2013148319

PATIENT
  Age: 66 Year
  Sex: Female
  Weight: 70.7 kg

DRUGS (3)
  1. LEVOXYL [Suspect]
     Indication: THYROID HORMONE REPLACEMENT THERAPY
     Dosage: 0.088 MG, 1X/DAY
     Route: 048
     Dates: start: 2005, end: 20130509
  2. NEXIUM [Concomitant]
     Dosage: UNK
  3. ALLEGRA [Concomitant]
     Dosage: UNK

REACTIONS (2)
  - Fatigue [Not Recovered/Not Resolved]
  - Somnolence [Not Recovered/Not Resolved]
